FAERS Safety Report 8533753 (Version 3)
Quarter: 2012Q4

REPORT INFORMATION
  Report Type: Report from Study
  Country: DE (occurrence: DE)
  Receive Date: 20120427
  Receipt Date: 20120921
  Transmission Date: 20130627
  Serious: Yes (Hospitalization)
  Sender: FDA-Public Use
  Company Number: DE-ABBOTT-12P-062-0927069-00

PATIENT
  Age: 61 Year
  Sex: Male
  Weight: 80 kg

DRUGS (12)
  1. HUMIRA [Suspect]
     Indication: RHEUMATOID ARTHRITIS
     Route: 058
     Dates: start: 20111124, end: 20120328
  2. METHOTREXATE [Suspect]
     Indication: RHEUMATOID ARTHRITIS
     Route: 048
     Dates: start: 20111124, end: 20120404
  3. DICLOFENAC [Concomitant]
     Indication: RHEUMATOID ARTHRITIS
     Route: 048
     Dates: start: 20111020
  4. DICLOFENAC [Concomitant]
     Indication: ARTHRALGIA
  5. PANTOZOL [Concomitant]
     Indication: PROPHYLAXIS
     Route: 048
     Dates: start: 20111110
  6. PANTOZOL [Concomitant]
     Indication: GASTRIC DISORDER
  7. PANTOZOL [Concomitant]
     Indication: PROPHYLAXIS
  8. PANTOZOL [Concomitant]
     Indication: GASTRIC DISORDER
  9. CALCIUM [Concomitant]
     Indication: OSTEOPOROSIS PROPHYLAXIS
     Route: 048
     Dates: start: 20111110
  10. DEKRISTOL [Concomitant]
     Indication: VITAMIN D DEFICIENCY
     Dosage: 20.000 IE weekly
     Route: 048
     Dates: start: 20111112
  11. FOLSAN [Concomitant]
     Indication: VITAMIN SUPPLEMENTATION
     Dosage: 5mg weekly
     Route: 048
     Dates: start: 20111115, end: 20120405
  12. FOLIC ACID [Concomitant]
     Indication: VITAMIN SUPPLEMENTATION
     Dosage: 5mg weekly
     Dates: start: 20111126, end: 20120405

REACTIONS (1)
  - Rheumatoid arthritis [Recovered/Resolved]
